FAERS Safety Report 11098080 (Version 2)
Quarter: 2015Q2

REPORT INFORMATION
  Report Type: Spontaneous
  Country: US (occurrence: US)
  Receive Date: 20150507
  Receipt Date: 20150513
  Transmission Date: 20150821
  Serious: No
  Sender: FDA-Public Use
  Company Number: US-PFIZER INC-2015155511

PATIENT
  Age: 73 Year
  Sex: Female
  Weight: 107 kg

DRUGS (1)
  1. AROMASIN [Suspect]
     Active Substance: EXEMESTANE
     Dosage: 25 MG, 1X/DAY
     Route: 048

REACTIONS (3)
  - Arthralgia [Unknown]
  - Arthropathy [Unknown]
  - Alopecia [Unknown]
